FAERS Safety Report 6746480-8 (Version None)
Quarter: 2010Q2

REPORT INFORMATION
  Report Type: 
  Country: None (occurrence: None)
  Receive Date: 20100528
  Receipt Date: 20100401
  Transmission Date: 20101027
  Serious: No
  Sender: FDA-Public Use
  Company Number: US-ASTRAZENECA-2010SE14576

PATIENT
  Sex: Male

DRUGS (1)
  1. PRILOSEC OTC [Suspect]
     Route: 048
     Dates: start: 20100307

REACTIONS (5)
  - DRUG INEFFECTIVE [None]
  - DYSPHAGIA [None]
  - ERUCTATION [None]
  - FATIGUE [None]
  - NAUSEA [None]
